FAERS Safety Report 21029436 (Version 2)
Quarter: 2022Q3

REPORT INFORMATION
  Report Type: Report from Study
  Country: US (occurrence: US)
  Receive Date: 20220630
  Receipt Date: 20220715
  Transmission Date: 20221027
  Serious: Yes (Other)
  Sender: FDA-Public Use
  Company Number: US-TEVA-2022-US-2049004

PATIENT
  Age: 64 Year
  Sex: Female

DRUGS (1)
  1. AUSTEDO [Suspect]
     Active Substance: DEUTETRABENAZINE
     Indication: Tardive dyskinesia
     Dosage: 24 MILLIGRAM DAILY; TWICE A DAY
     Route: 065
     Dates: start: 20220519

REACTIONS (6)
  - Hallucination, auditory [Unknown]
  - Therapeutic product effect incomplete [Unknown]
  - Food craving [Unknown]
  - Anxiety [Unknown]
  - Insomnia [Unknown]
  - Mouth injury [Unknown]

NARRATIVE: CASE EVENT DATE: 20220101
